FAERS Safety Report 5786277-9 (Version None)
Quarter: 2008Q2

REPORT INFORMATION
  Report Type: 
  Country: None (occurrence: None)
  Receive Date: 20080624
  Receipt Date: 20080616
  Transmission Date: 20081010
  Serious: Yes (Other)
  Sender: FDA-Public Use
  Company Number: US-PFIZER INC-2008050761

PATIENT
  Sex: Male
  Weight: 81.818 kg

DRUGS (1)
  1. LIPITOR [Suspect]
     Indication: BLOOD CHOLESTEROL INCREASED
     Dosage: FREQ:ONCE EVERY DAY
     Route: 048

REACTIONS (1)
  - EYE DEGENERATIVE DISORDER [None]
